FAERS Safety Report 7678226-3 (Version None)
Quarter: 2011Q3

REPORT INFORMATION
  Report Type: 
  Country: None (occurrence: None)
  Receive Date: 20110811
  Receipt Date: 20110802
  Transmission Date: 20111222
  Serious: Yes (Hospitalization)
  Sender: FDA-Public Use
  Company Number: NZ-BAXTER-2011BH025338

PATIENT
  Age: 6 Month
  Sex: Male

DRUGS (3)
  1. CLINOLEIC 20% [Suspect]
     Indication: PARENTERAL NUTRITION
     Route: 042
  2. DEXTROSE 10% [Suspect]
     Indication: PARENTERAL NUTRITION
     Route: 042
  3. TRAVASOL 10% W/ ELECTROLYTES [Suspect]
     Indication: PARENTERAL NUTRITION
     Route: 042

REACTIONS (2)
  - PYREXIA [None]
  - DEVICE RELATED INFECTION [None]
